FAERS Safety Report 25334735 (Version 1)
Quarter: 2025Q2

REPORT INFORMATION
  Report Type: Spontaneous
  Country: HU (occurrence: HU)
  Receive Date: 20250520
  Receipt Date: 20250520
  Transmission Date: 20250716
  Serious: Yes (Other)
  Sender: ROCHE
  Company Number: HU-ROCHE-10000282820

PATIENT
  Age: 31 Year

DRUGS (1)
  1. OCREVUS [Suspect]
     Active Substance: OCRELIZUMAB
     Indication: Product used for unknown indication
     Route: 050

REACTIONS (5)
  - Infusion related reaction [Unknown]
  - Central nervous system lesion [Unknown]
  - Headache [Unknown]
  - Sensory disturbance [Unknown]
  - Multiple sclerosis pseudo relapse [Unknown]
